FAERS Safety Report 4360830-1 (Version None)
Quarter: 2004Q2

REPORT INFORMATION
  Report Type: 
  Country: None (occurrence: None)
  Receive Date: 20040519
  Receipt Date: 20040519
  Transmission Date: 20050107
  Serious: Yes (Other)
  Sender: FDA-Public Use
  Company Number: None

PATIENT
  Age: 56 Year
  Sex: Female
  Weight: 72.5755 kg

DRUGS (9)
  1. REBIF [Suspect]
     Indication: MULTIPLE SCLEROSIS
     Dosage: 80 MCG SQ 3X WK [DOSE # 6]
     Route: 058
     Dates: start: 20040503
  2. SOLU-MEDROL [Suspect]
  3. PREDNISONE [Suspect]
  4. DEPAKOTE [Concomitant]
  5. LEVOXYL [Concomitant]
  6. DEPAKOTE [Concomitant]
  7. PAXIL [Concomitant]
  8. PRIMODONE [Concomitant]
  9. ELAVIL [Concomitant]

REACTIONS (4)
  - DRUG HYPERSENSITIVITY [None]
  - GENERALISED ERYTHEMA [None]
  - PRURITUS GENERALISED [None]
  - URTICARIA GENERALISED [None]
